FAERS Safety Report 6457650-0 (Version None)
Quarter: 2009Q4

REPORT INFORMATION
  Report Type: 
  Country: None (occurrence: None)
  Receive Date: 20091024
  Receipt Date: 20091109
  Transmission Date: 20100525
  Serious: Yes (Death, Hospitalization)
  Sender: FDA-Public Use
  Company Number: 2009AC000192

PATIENT
  Age: 78 Year
  Sex: Female

DRUGS (78)
  1. DIGOXIN [Suspect]
     Dosage: 0.125 MG;QD
     Dates: start: 20080222
  2. MEGESTROL ACETATE [Concomitant]
  3. ZOCOR [Concomitant]
  4. PROCRIT [Concomitant]
  5. DURAGESIC-100 [Concomitant]
  6. IMDUR [Concomitant]
  7. ATIVAN [Concomitant]
  8. ACETA/COD [Concomitant]
  9. CLORAZEPATE DIPOTASSIUM [Concomitant]
  10. METOPROLOL [Concomitant]
  11. NORVASC [Concomitant]
  12. PREMPRO [Concomitant]
  13. CHROMAGEN [Concomitant]
  14. ACETAMINOPHEN [Concomitant]
  15. RANITIDINE [Concomitant]
  16. INDERAL [Concomitant]
  17. CIPRO [Concomitant]
  18. FUROSEMIDE [Concomitant]
  19. ERYTHROMYCIN [Concomitant]
  20. DIPHENHYDRAMINE HCL [Concomitant]
  21. SSD CREAM [Concomitant]
  22. FUROSEMIDE [Concomitant]
  23. SENSIPAR [Concomitant]
  24. FLONASE [Concomitant]
  25. OXYCODONE HCL AND ACETAMINOPHEN [Concomitant]
  26. PANTOPRAZOLE [Concomitant]
  27. ASPIRIN [Concomitant]
  28. RENAL CAPS [Concomitant]
  29. KEPPRA [Concomitant]
  30. HYDROCORTISONE [Concomitant]
  31. ALLANFIL [Concomitant]
  32. CILOSTAZOL [Concomitant]
  33. GLYCOLAX [Concomitant]
  34. HYDROCOD/ACETA [Concomitant]
  35. LIDOCAINE/PRILOCAINE [Concomitant]
  36. RENAGEL [Concomitant]
  37. NITROGLYCERIN [Concomitant]
  38. ENULOSE [Concomitant]
  39. PRILOSEC [Concomitant]
  40. PROMETHAZINE [Concomitant]
  41. FOSRENOL [Concomitant]
  42. METHYLPRED [Concomitant]
  43. DRISDOL [Concomitant]
  44. AZITHROMYCIN [Concomitant]
  45. PULMICORT [Concomitant]
  46. IPRATROPIUM BROMIDE AND ALBUTEROL SULFATE [Concomitant]
  47. HYDROMET [Concomitant]
  48. PRO-AIR [Concomitant]
  49. PHOSLO [Concomitant]
  50. ENDACOF [Concomitant]
  51. XPECT-PE [Concomitant]
  52. ORPHENADRINE CITRATE [Concomitant]
  53. NEXIUM [Concomitant]
  54. TRIMETH/SULFA [Concomitant]
  55. SULAR [Concomitant]
  56. ISOSORBIDE [Concomitant]
  57. DIOVAN [Concomitant]
  58. COMBIVENT [Concomitant]
  59. CYPROHEPTADINE [Concomitant]
  60. LIPITOR [Concomitant]
  61. LEVAQUIN [Concomitant]
  62. AVELOX [Concomitant]
  63. VOSPIRE [Concomitant]
  64. FOSRENOL [Concomitant]
  65. SODIUM BICARBONATE IN PLASTIC CONTAINER [Concomitant]
  66. AMIODARONE HCL [Concomitant]
  67. AGGRENOX [Concomitant]
  68. CIPROFLOXACIN [Concomitant]
  69. ZYMAR [Concomitant]
  70. DIPHENOXYLATE HCL + ATROPINE SULFATE [Concomitant]
  71. PROTONIX [Concomitant]
  72. COUMADIN [Concomitant]
  73. RENAVIL [Concomitant]
  74. PLETAL [Concomitant]
  75. LORTAB [Concomitant]
  76. MIRALAZ [Concomitant]
  77. LACTULOSE [Concomitant]
  78. OXYGEN [Concomitant]

REACTIONS (27)
  - ANAEMIA [None]
  - ANXIETY [None]
  - ATRIAL FIBRILLATION [None]
  - CARDIAC FAILURE CONGESTIVE [None]
  - CARDIOACTIVE DRUG LEVEL INCREASED [None]
  - CONVULSION [None]
  - DECUBITUS ULCER [None]
  - DIARRHOEA [None]
  - ECONOMIC PROBLEM [None]
  - ELECTROENCEPHALOGRAM ABNORMAL [None]
  - GANGRENE [None]
  - GASTROINTESTINAL ISCHAEMIA [None]
  - HAEMODYNAMIC INSTABILITY [None]
  - HEART RATE IRREGULAR [None]
  - HYPOPHAGIA [None]
  - IMPAIRED HEALING [None]
  - INJURY [None]
  - LETHARGY [None]
  - LEUKOCYTOSIS [None]
  - MUSCULOSKELETAL STIFFNESS [None]
  - OLIGURIA [None]
  - PULMONARY OEDEMA [None]
  - RENAL FAILURE CHRONIC [None]
  - SKIN ULCER [None]
  - SOMNOLENCE [None]
  - THERAPEUTIC AGENT TOXICITY [None]
  - UNRESPONSIVE TO STIMULI [None]
